FAERS Safety Report 24904169 (Version 1)
Quarter: 2025Q1

REPORT INFORMATION
  Report Type: Spontaneous
  Country: US (occurrence: None)
  Receive Date: 20250129
  Receipt Date: 20250129
  Transmission Date: 20250409
  Serious: Yes (Hospitalization)
  Sender: FDA-CTU
  Company Number: None

PATIENT
  Age: 80 Year
  Sex: Female

DRUGS (1)
  1. DERMACINRX CLORHEXACIN [Suspect]
     Active Substance: CHLORHEXIDINE GLUCONATE\DIMETHICONE\MUPIROCIN
     Indication: Antibiotic prophylaxis
     Dosage: FREQUENCY : TWICE A DAY;?
     Route: 045
     Dates: start: 20250108

REACTIONS (1)
  - Hallucination [None]

NARRATIVE: CASE EVENT DATE: 20250108
